FAERS Safety Report 8520629-9 (Version None)
Quarter: 2012Q3

REPORT INFORMATION
  Report Type: 
  Country: None (occurrence: None)
  Receive Date: 20120719
  Receipt Date: 20120706
  Transmission Date: 20120928
  Serious: Yes (Hospitalization)
  Sender: FDA-Public Use
  Company Number: JP-FRI-1000036896

PATIENT
  Sex: Male

DRUGS (12)
  1. PRIMPERAN TAB [Concomitant]
     Indication: GASTRITIS
     Dosage: 45 MG
     Route: 048
     Dates: start: 20090619
  2. FAMOTIDINE [Concomitant]
     Indication: GASTRITIS
     Dosage: 20 MG
     Route: 048
     Dates: start: 20090627
  3. NORVASC [Concomitant]
     Indication: HYPERTENSION
     Dosage: 2.5 MG
     Route: 048
     Dates: start: 20111004
  4. MEMANTINE HCL [Suspect]
     Indication: BEHAVIOURAL AND PSYCHIATRIC SYMPTOMS OF DEMENTIA
  5. DEPAKENE [Concomitant]
     Indication: EPILEPSY
     Dosage: 2700 MG
     Route: 048
     Dates: start: 20120328
  6. MICARDIS [Concomitant]
     Indication: HYPERTENSION
     Dosage: 40 MG
     Route: 048
     Dates: start: 20111004
  7. MEMANTINE HCL [Suspect]
     Dosage: 10 MG
     Route: 048
     Dates: start: 20120509, end: 20120531
  8. MEMANTINE HCL [Suspect]
  9. RISPERDAL [Concomitant]
     Indication: BEHAVIOURAL AND PSYCHIATRIC SYMPTOMS OF DEMENTIA
     Dosage: 0.5 MG
     Route: 048
     Dates: start: 20120510
  10. ZOLPIDEM [Concomitant]
     Indication: INSOMNIA
     Dosage: 10 MG
     Route: 048
     Dates: start: 20120418
  11. MEMANTINE HCL [Suspect]
     Indication: DEMENTIA
     Dosage: 5 MG
     Route: 048
     Dates: start: 20120502, end: 20120508
  12. YOKUKANSANKACHIMPIHANGE [Concomitant]
     Indication: BEHAVIOURAL AND PSYCHIATRIC SYMPTOMS OF DEMENTIA
     Dosage: 22.5 G
     Route: 048
     Dates: start: 20090630

REACTIONS (1)
  - PYREXIA [None]
